FAERS Safety Report 24608403 (Version 5)
Quarter: 2024Q4

REPORT INFORMATION
  Report Type: Spontaneous
  Country: GB (occurrence: GB)
  Receive Date: 20241112
  Receipt Date: 20241205
  Transmission Date: 20250115
  Serious: Yes (Life-Threatening, Hospitalization, Other)
  Sender: MYLAN
  Company Number: GB-MYLANLABS-2024M1101190

PATIENT
  Sex: Female

DRUGS (1)
  1. CLOZARIL [Suspect]
     Active Substance: CLOZAPINE
     Indication: Schizophrenia
     Dosage: UNK
     Route: 048
     Dates: start: 20110131, end: 20241102

REACTIONS (5)
  - Coma [Unknown]
  - Urinary tract infection [Unknown]
  - Sepsis [Unknown]
  - Thrombocytopenia [Unknown]
  - Therapy interrupted [Unknown]
